FAERS Safety Report 17428923 (Version 1)
Quarter: 2020Q1

REPORT INFORMATION
  Report Type: Spontaneous
  Country: PL (occurrence: PL)
  Receive Date: 20200218
  Receipt Date: 20200218
  Transmission Date: 20200409
  Serious: Yes (Other)
  Sender: FDA-Public Use
  Company Number: PL-PFIZER INC-2020066159

PATIENT
  Age: 70 Year
  Sex: Male

DRUGS (3)
  1. DOXAR [DOXAZOSIN MESILATE] [Concomitant]
     Indication: PROSTATIC DISORDER
     Dosage: UNK
  2. ANTIPROST [Concomitant]
     Indication: PROSTATIC DISORDER
     Dosage: UNK
  3. DALACIN C [Suspect]
     Active Substance: CLINDAMYCIN PHOSPHATE
     Indication: PULPITIS DENTAL
     Dosage: 300 MG, UNK
     Route: 048
     Dates: start: 201903

REACTIONS (3)
  - Rectal haemorrhage [Recovered/Resolved]
  - Pseudomembranous colitis [Recovered/Resolved]
  - Mucous stools [Recovered/Resolved]
